FAERS Safety Report 9515887 (Version 4)
Quarter: 2013Q4

REPORT INFORMATION
  Report Type: Spontaneous
  Country: US (occurrence: US)
  Receive Date: 20130911
  Receipt Date: 20131006
  Transmission Date: 20140711
  Serious: Yes (Death, Life-Threatening, Hospitalization, Other)
  Sender: FDA-Public Use
  Company Number: US-PFIZER INC-2013240202

PATIENT
  Age: 47 Year
  Sex: Female

DRUGS (25)
  1. INLYTA [Suspect]
     Indication: RENAL CANCER
     Dosage: 5 MG, 2X/DAY
     Route: 048
     Dates: start: 20130711, end: 20130730
  2. AMLODIPINE [Concomitant]
     Indication: HYPERTENSION
     Dosage: 2.5 MG, AS NEEDED (DAILY: PRN)
     Route: 048
  3. FENTANYL [Concomitant]
     Indication: PAIN
     Dosage: 25 MCG PATCH Q 72H
  4. FENTANYL [Concomitant]
     Dosage: PATCH 12 MCG/H TP Q72H
     Route: 062
  5. FENTANYL [Concomitant]
     Dosage: PATCH 50 MCG/H TP Q72H
     Route: 062
  6. TRAMADOL [Concomitant]
     Indication: PAIN
     Dosage: 50-100 MG Q 6H PRN
  7. ACETAMINOPHEN [Concomitant]
     Indication: PAIN
     Dosage: 325-650 MG, AS NEEDED (Q4H: PRN)
     Route: 048
  8. DOCUSATE SODIUM [Concomitant]
     Dosage: 200 MG, 2X/DAY
     Route: 048
  9. ESTRADIOL [Concomitant]
     Dosage: 1 MG, DAILY
     Route: 048
  10. LORAZEPAM [Concomitant]
     Indication: NAUSEA
     Dosage: 0.5 MG, AS NEEDED (Q6H: PRN)
     Route: 048
  11. LOSARTAN POTASSIUM [Concomitant]
     Dosage: 100 MG, DAILY
     Route: 048
  12. METOCLOPRAMIDE [Concomitant]
     Dosage: 5 MG, 2X/DAY
     Route: 048
  13. OMEPRAZOLE [Concomitant]
     Dosage: 40 MG, DAILY
     Route: 048
  14. ONDANSETRON [Concomitant]
     Indication: NAUSEA
     Dosage: 4-8 MG, AS NEEDED (Q8H: PRN)
     Route: 048
  15. PREDNISONE [Concomitant]
     Dosage: 5 MG, DAILY
     Route: 048
  16. RANITIDINE [Concomitant]
     Dosage: 300 MG, 1X/DAY (HS)
     Route: 048
  17. SIMVASTATIN [Concomitant]
     Dosage: 20 MG, DAILY
     Route: 048
  18. ULTRAM [Concomitant]
     Indication: PAIN
     Dosage: 50-75 MG, AS NEEDED (Q6H: PRN)
     Route: 048
  19. BENZONATATE [Concomitant]
     Dosage: 100 MG, 3X/DAY
     Route: 048
  20. BISACODYL [Concomitant]
     Indication: CONSTIPATION
     Dosage: 10 MG, AS NEEDED (PR DAILY: PRN)
  21. HYDROXYCHLOROQUINE SULFATE [Concomitant]
     Dosage: 200 MG, DAILY
     Route: 048
  22. LIDOCAINE HYDROCHLORIDE/PRILOCAINE HYDROCHLORIDE [Concomitant]
     Dosage: UNK, AS NEEDED (1APPL TP PRN PORT ACCESS)
     Route: 061
  23. DARBEPOETIN ALFA [Concomitant]
     Dosage: 500 MCG/ML, EVERY 3 WEEKS
  24. SCOPOLAMINE [Concomitant]
     Indication: NAUSEA
     Dosage: UNK, AS NEEDED (1 PATCH TD Q72H:PRN)
     Route: 062
  25. POLYETHYLENE GLYCOL [Concomitant]
     Dosage: UNK, AS NEEDED

REACTIONS (5)
  - Pneumonia [Fatal]
  - Respiratory acidosis [Fatal]
  - Cardiac failure congestive [Recovered/Resolved with Sequelae]
  - Pneumothorax [Unknown]
  - Pleural effusion [Unknown]
